FAERS Safety Report 25532763 (Version 2)
Quarter: 2025Q3

REPORT INFORMATION
  Report Type: Report from Study
  Country: US (occurrence: US)
  Receive Date: 20250709
  Receipt Date: 20250908
  Transmission Date: 20251021
  Serious: Yes (Hospitalization)
  Sender: ABBVIE
  Company Number: US-ABBVIE-6361287

PATIENT
  Age: 48 Year
  Sex: Female

DRUGS (2)
  1. RINVOQ [Suspect]
     Active Substance: UPADACITINIB
     Indication: Colitis ulcerative
     Dosage: FIRST ADMIN DATE: 2025
     Route: 048
  2. RINVOQ [Suspect]
     Active Substance: UPADACITINIB
     Indication: Colitis ulcerative
     Dosage: LAST ADMIN DATE: 2025
     Route: 048
     Dates: start: 20250329

REACTIONS (6)
  - Hyperthermia malignant [Recovering/Resolving]
  - Pruritus [Unknown]
  - Red blood cell count decreased [Recovering/Resolving]
  - Fungal infection [Recovering/Resolving]
  - Dyspnoea [Recovering/Resolving]
  - Reticulocyte count decreased [Recovering/Resolving]

NARRATIVE: CASE EVENT DATE: 20250630
